FAERS Safety Report 20675643 (Version 1)
Quarter: 2022Q2

REPORT INFORMATION
  Report Type: Spontaneous
  Country: US (occurrence: None)
  Receive Date: 20220404
  Receipt Date: 20220404
  Transmission Date: 20220720
  Serious: No
  Sender: FDA-Public Use
  Company Number: None

PATIENT
  Age: 69 Year
  Sex: Female

DRUGS (1)
  1. MEKINIST [Suspect]
     Active Substance: TRAMETINIB DIMETHYL SULFOXIDE
     Indication: Ovarian cancer
     Dosage: FREQUENCY : DAILY;?
     Route: 048
     Dates: start: 202104

REACTIONS (6)
  - Staphylococcal infection [None]
  - Nail bed infection [None]
  - Blood thyroid stimulating hormone abnormal [None]
  - Alopecia [None]
  - Acne [None]
  - Electrocardiogram abnormal [None]

NARRATIVE: CASE EVENT DATE: 20220308
